FAERS Safety Report 6285621-6 (Version None)
Quarter: 2009Q3

REPORT INFORMATION
  Report Type: 
  Country: None (occurrence: None)
  Receive Date: 20090724
  Receipt Date: 20090713
  Transmission Date: 20100115
  Serious: Yes (Hospitalization, Other)
  Sender: FDA-Public Use
  Company Number: SPV1-2009-01028

PATIENT
  Age: 8 Year
  Sex: Male

DRUGS (2)
  1. ELAPRASE [Suspect]
     Indication: MUCOPOLYSACCHARIDOSIS II
     Dosage: IV DRIP
     Route: 041
     Dates: start: 20080417
  2. ANTIEPILEPTICS [Suspect]

REACTIONS (9)
  - APHASIA [None]
  - CONDITION AGGRAVATED [None]
  - CONVULSION [None]
  - CRYING [None]
  - DISEASE PROGRESSION [None]
  - LETHARGY [None]
  - MOTOR DYSFUNCTION [None]
  - MUCOPOLYSACCHARIDOSIS II [None]
  - UNRESPONSIVE TO STIMULI [None]
